FAERS Safety Report 22348479 (Version 3)
Quarter: 2024Q2

REPORT INFORMATION
  Report Type: Report from Study
  Country: US (occurrence: US)
  Receive Date: 20230522
  Receipt Date: 20240404
  Transmission Date: 20240715
  Serious: Yes (Hospitalization, Other)
  Sender: FDA-Public Use
  Company Number: US-ABBVIE-4762940

PATIENT
  Sex: Female

DRUGS (2)
  1. IMBRUVICA [Suspect]
     Active Substance: IBRUTINIB
     Indication: Chronic lymphocytic leukaemia
     Dosage: STRENGTH: 420 MG
     Route: 048
     Dates: start: 20191219
  2. IMBRUVICA [Suspect]
     Active Substance: IBRUTINIB
     Indication: Chronic lymphocytic leukaemia
     Route: 048
     Dates: start: 201912, end: 201912

REACTIONS (5)
  - Vertigo [Unknown]
  - Urinary tract infection [Recovered/Resolved]
  - Nail disorder [Recovering/Resolving]
  - Finger deformity [Unknown]
  - Sepsis [Recovered/Resolved]
